FAERS Safety Report 5237774-6 (Version None)
Quarter: 2007Q1

REPORT INFORMATION
  Report Type: 
  Country: None (occurrence: None)
  Receive Date: 20070214
  Receipt Date: 20070209
  Transmission Date: 20070707
  Serious: Yes (Death, Other)
  Sender: FDA-Public Use
  Company Number: CH-GLAXOSMITHKLINE-B0457964A

PATIENT
  Age: 65 Year
  Sex: Female

DRUGS (1)
  1. AUGMENTIN '125' [Suspect]
     Indication: INFECTION
     Dosage: 1G UNKNOWN
     Route: 048
     Dates: start: 19991118, end: 19991119

REACTIONS (5)
  - LARGE INTESTINE PERFORATION [None]
  - PNEUMONIA [None]
  - RASH GENERALISED [None]
  - SEPSIS [None]
  - SURGERY [None]
